FAERS Safety Report 8863154 (Version 2)
Quarter: 2012Q4

REPORT INFORMATION
  Report Type: Report from Study
  Country: FR (occurrence: FR)
  Receive Date: 20121026
  Receipt Date: 20121126
  Transmission Date: 20130627
  Serious: Yes (Hospitalization)
  Sender: FDA-Public Use
  Company Number: FR-GLAXOSMITHKLINE-B0835402A

PATIENT
  Age: 62 Year
  Sex: Male
  Weight: 58 kg

DRUGS (7)
  1. ARZERRA [Suspect]
     Indication: B-CELL LYMPHOMA
     Route: 042
     Dates: start: 20120817
  2. METHYLPREDNISOLONE [Suspect]
     Indication: B-CELL LYMPHOMA
     Route: 042
     Dates: start: 20120817, end: 20120907
  3. BENDAMUSTINE [Suspect]
     Indication: B-CELL LYMPHOMA
     Dosage: 116MG Cyclic
     Route: 042
     Dates: start: 20120824
  4. CAPTOPRIL [Concomitant]
     Indication: HYPERTENSION
     Dosage: 25MG Per day
     Route: 048
     Dates: start: 20060909
  5. PRAVASTATIN [Concomitant]
     Indication: HYPERCHOLESTEROLAEMIA
     Dosage: 40MG per day
     Route: 048
     Dates: start: 20120207
  6. RENAGEL [Concomitant]
     Indication: HYPERCHOLESTEROLAEMIA
     Dosage: 800MG per day
     Route: 048
     Dates: start: 20120818
  7. STEROIDS [Concomitant]
     Indication: HAEMOLYTIC ANAEMIA
     Dates: end: 201208

REACTIONS (2)
  - Febrile neutropenia [Recovered/Resolved]
  - Lymphopenia [Recovered/Resolved]
